FAERS Safety Report 14602165 (Version 11)
Quarter: 2025Q3

REPORT INFORMATION
  Report Type: Report from Study
  Country: CO (occurrence: CO)
  Receive Date: 20180306
  Receipt Date: 20250716
  Transmission Date: 20251021
  Serious: Yes (Hospitalization, Other)
  Sender: INCYTE
  Company Number: CO-002147023-PHHY2017CO171682

PATIENT
  Age: 59 Year

DRUGS (14)
  1. RUXOLITINIB [Suspect]
     Active Substance: RUXOLITINIB
     Indication: Primary myelofibrosis
     Dosage: 10 MG, BID (TWICE DAILY)
  2. RUXOLITINIB [Suspect]
     Active Substance: RUXOLITINIB
     Dosage: 20 MG, QD
  3. RUXOLITINIB [Suspect]
     Active Substance: RUXOLITINIB
  4. JADENU [Suspect]
     Active Substance: DEFERASIROX
     Indication: Primary myelofibrosis
     Dosage: 1100 MG, QD
  5. JADENU [Suspect]
     Active Substance: DEFERASIROX
     Indication: Aplastic anaemia
  6. LOSARTAN [Suspect]
     Active Substance: LOSARTAN
     Indication: Product used for unknown indication
     Route: 065
  7. CARVEDILOL [Suspect]
     Active Substance: CARVEDILOL
     Indication: Product used for unknown indication
     Route: 065
  8. ALLOPURINOL [Concomitant]
     Active Substance: ALLOPURINOL
     Indication: Blood uric acid abnormal
     Dosage: 100 MG, BID (1 EVERY 12 HOURS)
     Route: 065
  9. ENALAPRIL [Concomitant]
     Active Substance: ENALAPRIL
     Indication: Product used for unknown indication
     Route: 065
  10. OMEPRAZOLE [Concomitant]
     Active Substance: OMEPRAZOLE
     Indication: Product used for unknown indication
     Route: 065
  11. COLCHICINE [Concomitant]
     Active Substance: COLCHICINE
     Indication: Product used for unknown indication
     Route: 065
  12. FUROSEMIDE [Concomitant]
     Active Substance: FUROSEMIDE
     Indication: Product used for unknown indication
     Route: 065
  13. HYDROXYUREA [Concomitant]
     Active Substance: HYDROXYUREA
     Indication: Product used for unknown indication
     Dosage: 500 MG, QD (EVERY NIGHT)
     Route: 065
  14. SPIRONOLACTONE [Concomitant]
     Active Substance: SPIRONOLACTONE
     Indication: Product used for unknown indication

REACTIONS (18)
  - Asphyxia [Unknown]
  - Depressed mood [Unknown]
  - Blood iron decreased [Unknown]
  - Serum ferritin increased [Unknown]
  - Fatigue [Unknown]
  - Cardiac failure [Unknown]
  - Blood iron increased [Unknown]
  - Drug ineffective [Unknown]
  - Anaemia [Recovered/Resolved]
  - Hepatomegaly [Unknown]
  - Fluid retention [Recovered/Resolved]
  - Red blood cell count decreased [Unknown]
  - Somnolence [Recovered/Resolved]
  - Dizziness [Recovered/Resolved]
  - Muscle spasms [Unknown]
  - Abdominal distension [Unknown]
  - Ascites [Not Recovered/Not Resolved]
  - Peripheral swelling [Unknown]
